FAERS Safety Report 10169674 (Version 1)
Quarter: 2014Q2

REPORT INFORMATION
  Report Type: Spontaneous
  Country: US (occurrence: US)
  Receive Date: 20140513
  Receipt Date: 20140513
  Transmission Date: 20141212
  Serious: Yes (Other)
  Sender: FDA-Public Use
  Company Number: US-ELI_LILLY_AND_COMPANY-US201405001142

PATIENT
  Sex: Male

DRUGS (3)
  1. HUMALOG LISPRO [Suspect]
     Indication: DIABETES MELLITUS
     Route: 065
  2. HUMALOG LISPRO [Suspect]
     Dosage: UNK
     Route: 065
  3. LANTUS [Concomitant]

REACTIONS (3)
  - Generalised tonic-clonic seizure [Unknown]
  - White matter lesion [Unknown]
  - Amnesia [Unknown]
